FAERS Safety Report 25746086 (Version 1)
Quarter: 2025Q3

REPORT INFORMATION
  Report Type: Spontaneous
  Country: US (occurrence: US)
  Receive Date: 20250901
  Receipt Date: 20250901
  Transmission Date: 20251021
  Serious: Yes (Other)
  Sender: LUPIN
  Company Number: US-LUPIN PHARMACEUTICALS INC.-2025-07617

PATIENT
  Age: 48 Year
  Sex: Male

DRUGS (3)
  1. RIFAMPIN [Suspect]
     Active Substance: RIFAMPIN
     Indication: Brucellosis
     Dosage: 900 MG, QD
  2. GENTAMICIN [Suspect]
     Active Substance: GENTAMICIN
     Indication: Brucellosis
  3. DOXYCYCLINE [Concomitant]
     Active Substance: DOXYCYCLINE
     Indication: Brucellosis
     Dosage: 100 MG, BID, 12-WEEK COURSE

REACTIONS (4)
  - Nephropathy toxic [Recovered/Resolved]
  - Nausea [Unknown]
  - Vomiting [Unknown]
  - Off label use [Unknown]
